FAERS Safety Report 9716251 (Version 1)
Quarter: 2013Q4

REPORT INFORMATION
  Report Type: Spontaneous
  Country: US (occurrence: None)
  Receive Date: 20131126
  Receipt Date: 20131126
  Transmission Date: 20140711
  Serious: Yes (Life-Threatening, Hospitalization)
  Sender: FDA-Public Use
  Company Number: None

PATIENT
  Age: 73 Year
  Sex: Male
  Weight: 100.9 kg

DRUGS (2)
  1. AMPICILLIN/SULBACTAM [Suspect]
     Dates: start: 20131121, end: 20131121
  2. LEVOFLOXACIN [Suspect]
     Dates: start: 20131121, end: 20131121

REACTIONS (2)
  - Septic shock [None]
  - Clostridium difficile infection [None]
